FAERS Safety Report 14585236 (Version 1)
Quarter: 2018Q1

REPORT INFORMATION
  Report Type: Spontaneous
  Country: FR (occurrence: FR)
  Receive Date: 20180301
  Receipt Date: 20180301
  Transmission Date: 20180509
  Serious: Yes (Hospitalization)
  Sender: FDA-Public Use
  Company Number: FR-ROCHE-2080386

PATIENT
  Age: 79 Year
  Sex: Male

DRUGS (5)
  1. ZELBORAF [Suspect]
     Active Substance: VEMURAFENIB
     Indication: LUNG NEOPLASM MALIGNANT
     Route: 048
     Dates: start: 20171026, end: 20180119
  2. FINASTERIDE. [Concomitant]
     Active Substance: FINASTERIDE
     Route: 048
  3. LOXEN LP [Concomitant]
     Active Substance: NICARDIPINE HYDROCHLORIDE
     Route: 048
     Dates: start: 20160401
  4. NEBIVOLOL. [Concomitant]
     Active Substance: NEBIVOLOL
     Route: 048
     Dates: start: 20160401
  5. LEVOTHYROX [Concomitant]
     Active Substance: LEVOTHYROXINE
     Dosage: INCONNU
     Route: 048

REACTIONS (3)
  - Rash [Recovering/Resolving]
  - Hyperglycaemia [Recovering/Resolving]
  - Dyskinesia [Recovered/Resolved]

NARRATIVE: CASE EVENT DATE: 20171109
